FAERS Safety Report 9542143 (Version 1)
Quarter: 2013Q3

REPORT INFORMATION
  Report Type: Spontaneous
  Country: GB (occurrence: None)
  Receive Date: 20130918
  Receipt Date: 20130918
  Transmission Date: 20140515
  Serious: Yes (Hospitalization, Other)
  Sender: FDA-Public Use
  Company Number: AUR-APL-2013-07606

PATIENT
  Age: 78 Year
  Sex: Female

DRUGS (9)
  1. CEFALEXIN [Suspect]
     Indication: CHRONIC OBSTRUCTIVE PULMONARY DISEASE
     Dosage: 1500 MG (500 MG,3 IN 1 D)
     Route: 048
     Dates: start: 201210
  2. CEFALEXIN [Suspect]
     Indication: INFECTION
     Dosage: 1500 MG (500 MG,3 IN 1 D)
     Route: 048
     Dates: start: 201210
  3. ALENDRONIC ACID (ALENDRONIC ACID) [Concomitant]
  4. ATORVASTATIN (ATORVASTATIN) [Concomitant]
  5. DOXYCYCLINE (DOXYCYCLINE) [Concomitant]
  6. NICORANDIL (NICORANDIL) [Concomitant]
  7. PHYLLOCONTIN CONTINUS (AMINOPHYLLINE) [Concomitant]
  8. PREDNISOLONE (PREDNISOLONE) [Concomitant]
  9. TEMAZEPAM (TEMAZEPAM) [Concomitant]

REACTIONS (3)
  - Treatment failure [None]
  - Neutrophilia [None]
  - Chronic obstructive pulmonary disease [None]
